FAERS Safety Report 13185530 (Version 1)
Quarter: 2017Q1

REPORT INFORMATION
  Report Type: Report from Study
  Country: US (occurrence: MX)
  Receive Date: 20170203
  Receipt Date: 20170203
  Transmission Date: 20170428
  Serious: Yes (Death)
  Sender: FDA-Public Use
  Company Number: US-SUNOVION-2017SUN000407

PATIENT
  Sex: Male

DRUGS (1)
  1. INDACATEROL AND GLYCOPYRROLATE [Suspect]
     Active Substance: GLYCOPYRROLATE\INDACATEROL MALEATE
     Indication: EMPHYSEMA
     Dosage: 2 DF, QD
     Route: 065
     Dates: start: 2015

REACTIONS (3)
  - Gastric ulcer [Fatal]
  - Inappropriate schedule of drug administration [Recovered/Resolved]
  - Duodenal ulcer [Fatal]

NARRATIVE: CASE EVENT DATE: 2015
